FAERS Safety Report 6815137-7 (Version None)
Quarter: 2010Q2

REPORT INFORMATION
  Report Type: 
  Country: None (occurrence: None)
  Receive Date: 20100630
  Receipt Date: 20100630
  Transmission Date: 20101027
  Serious: Yes (Life-Threatening, Hospitalization)
  Sender: FDA-Public Use
  Company Number: None

PATIENT
  Age: 45 Year
  Sex: Female
  Weight: 95.2554 kg

DRUGS (1)
  1. DIGITEK .25 MG MYLAN [Suspect]
     Indication: ATRIAL FIBRILLATION
     Dates: start: 20060601, end: 20071107

REACTIONS (14)
  - ATRIAL FIBRILLATION [None]
  - CARDIAC DISORDER [None]
  - CARDIAC FAILURE CONGESTIVE [None]
  - CARDIOGENIC SHOCK [None]
  - CORONARY ARTERY DISEASE [None]
  - DIZZINESS [None]
  - EJECTION FRACTION DECREASED [None]
  - FATIGUE [None]
  - INCORRECT DOSE ADMINISTERED [None]
  - NON-HODGKIN'S LYMPHOMA STAGE III [None]
  - PERICARDIAL EFFUSION [None]
  - PRODUCT QUALITY ISSUE [None]
  - THERAPEUTIC AGENT TOXICITY [None]
  - VOMITING [None]
